FAERS Safety Report 10079073 (Version 1)
Quarter: 2014Q2

REPORT INFORMATION
  Report Type: Spontaneous
  Country: US (occurrence: None)
  Receive Date: 20140411
  Receipt Date: 20140411
  Transmission Date: 20141212
  Serious: Yes (Life-Threatening, Hospitalization)
  Sender: FDA-Public Use
  Company Number: None

PATIENT
  Age: 69 Year
  Sex: Male
  Weight: 81.65 kg

DRUGS (14)
  1. TICAGRELOR [Suspect]
     Indication: STENT PLACEMENT
     Route: 048
     Dates: start: 20140228, end: 20140311
  2. ASPIRIN [Concomitant]
  3. PUMPKIN SEED OIL [Concomitant]
  4. CELERY SEED [Concomitant]
  5. GARLIC [Concomitant]
  6. KRILL OIL [Concomitant]
  7. VITAMIN D [Concomitant]
  8. GLUCOSAMINE-CHONDROITIN [Concomitant]
  9. DOXAZOSIN MESYLATE [Concomitant]
  10. TOPROL [Concomitant]
  11. LOTREL [Concomitant]
  12. PLAVIZ [Concomitant]
  13. PROSCAR [Concomitant]
  14. LOSARTAN POTASSIUM [Concomitant]

REACTIONS (1)
  - Blood urine present [None]
